FAERS Safety Report 20182916 (Version 1)
Quarter: 2021Q4

REPORT INFORMATION
  Report Type: Spontaneous
  Country: AR (occurrence: AR)
  Receive Date: 20211214
  Receipt Date: 20211214
  Transmission Date: 20220304
  Serious: No
  Sender: FDA-Public Use
  Company Number: AR-PFIZER INC-202100929783

PATIENT
  Age: 10 Year
  Sex: Female

DRUGS (1)
  1. GENOTROPIN [Suspect]
     Active Substance: SOMATROPIN
     Indication: Short stature
     Dosage: 1.5 TO 2 MG, 6 TIMES PER WEEK
     Dates: start: 20200702

REACTIONS (5)
  - Wrong technique in device usage process [Unknown]
  - Drug dose omission by device [Unknown]
  - Device occlusion [Unknown]
  - Liquid product physical issue [Unknown]
  - Product prescribing error [Unknown]

NARRATIVE: CASE EVENT DATE: 20200702
